FAERS Safety Report 18208832 (Version 5)
Quarter: 2022Q1

REPORT INFORMATION
  Report Type: Other
  Country: DE (occurrence: None)
  Receive Date: 20200828
  Receipt Date: 20220329
  Transmission Date: 20220423
  Serious: Yes (Life-Threatening, Hospitalization)
  Sender: FDA-Public Use
  Company Number: DE-ROCHE-2667023

PATIENT
  Age: 0 Year
  Sex: Female
  Weight: 2.7 kg

DRUGS (4)
  1. OCRELIZUMAB [Suspect]
     Active Substance: OCRELIZUMAB
     Indication: Product used for unknown indication
     Route: 064
     Dates: start: 20181123, end: 20181123
  2. OCRELIZUMAB [Suspect]
     Active Substance: OCRELIZUMAB
     Route: 064
     Dates: start: 20190523, end: 20190523
  3. ACETAMINOPHEN [Concomitant]
     Active Substance: ACETAMINOPHEN
     Dates: start: 20190727, end: 20190727
  4. CORTISONE ACETATE [Concomitant]
     Active Substance: CORTISONE ACETATE
     Dates: start: 20191206, end: 20191207

REACTIONS (4)
  - Dyspnoea [Recovered/Resolved with Sequelae]
  - Neurodermatitis [Recovering/Resolving]
  - Haemangioma [Recovered/Resolved]
  - Foetal exposure during pregnancy [Unknown]

NARRATIVE: CASE EVENT DATE: 20200116
